FAERS Safety Report 6384713-0 (Version None)
Quarter: 2009Q4

REPORT INFORMATION
  Report Type: 
  Country: None (occurrence: None)
  Receive Date: 20091001
  Receipt Date: 20090924
  Transmission Date: 20100525
  Serious: Yes (Other)
  Sender: FDA-Public Use
  Company Number: US-GILEAD-2009-0024461

PATIENT
  Sex: Male

DRUGS (4)
  1. ATRIPLA [Suspect]
     Indication: HIV INFECTION
  2. AVALIDE [Concomitant]
  3. ASTELIN [Concomitant]
  4. COREG [Concomitant]

REACTIONS (2)
  - CARDIAC FAILURE CHRONIC [None]
  - GYNAECOMASTIA [None]
